FAERS Safety Report 10442219 (Version 2)
Quarter: 2015Q1

REPORT INFORMATION
  Report Type: Spontaneous
  Country: BG (occurrence: BG)
  Receive Date: 20140909
  Receipt Date: 20150205
  Transmission Date: 20150720
  Serious: Yes (Life-Threatening, Hospitalization)
  Sender: FDA-Public Use
  Company Number: BG-TEVA-506054ISR

PATIENT
  Age: 66 Year
  Sex: Female
  Weight: 92 kg

DRUGS (2)
  1. TEVAGRASTIM [Suspect]
     Active Substance: FILGRASTIM
     Indication: LEUKOPENIA
     Dosage: 30 MIU (300 MCG/0.5 ML)
     Route: 058
     Dates: start: 20140814, end: 20140814
  2. PACLITAXEL. [Concomitant]
     Active Substance: PACLITAXEL
     Indication: NEOPLASM MALIGNANT

REACTIONS (6)
  - Anaphylactic reaction [Recovered/Resolved]
  - Musculoskeletal pain [Recovered/Resolved]
  - Tinnitus [Recovered/Resolved]
  - Abdominal pain [Recovered/Resolved]
  - Syncope [Recovered/Resolved]
  - Headache [Recovered/Resolved]

NARRATIVE: CASE EVENT DATE: 20140815
